FAERS Safety Report 13935977 (Version 3)
Quarter: 2017Q3

REPORT INFORMATION
  Report Type: Report from Study
  Country: CA (occurrence: CA)
  Receive Date: 20170905
  Receipt Date: 20170913
  Transmission Date: 20171127
  Serious: Yes (Other)
  Sender: FDA-Public Use
  Company Number: CA-JNJFOC-20170427970

PATIENT
  Age: 74 Year
  Sex: Female

DRUGS (6)
  1. IMBRUVICA [Suspect]
     Active Substance: IBRUTINIB
     Indication: CHRONIC LYMPHOCYTIC LEUKAEMIA
     Route: 048
     Dates: start: 20170322, end: 20170817
  2. IMBRUVICA [Suspect]
     Active Substance: IBRUTINIB
     Indication: CHRONIC LYMPHOCYTIC LEUKAEMIA
     Route: 048
     Dates: end: 20170907
  3. IMBRUVICA [Suspect]
     Active Substance: IBRUTINIB
     Indication: CHRONIC LYMPHOCYTIC LEUKAEMIA
     Route: 048
     Dates: start: 20170512
  4. IMBRUVICA [Suspect]
     Active Substance: IBRUTINIB
     Indication: CHRONIC LYMPHOCYTIC LEUKAEMIA
     Route: 048
     Dates: start: 20170411, end: 20170426
  5. IMBRUVICA [Suspect]
     Active Substance: IBRUTINIB
     Indication: CHRONIC LYMPHOCYTIC LEUKAEMIA
     Route: 048
     Dates: start: 20170824, end: 20170830
  6. IMBRUVICA [Suspect]
     Active Substance: IBRUTINIB
     Indication: CHRONIC LYMPHOCYTIC LEUKAEMIA
     Route: 048

REACTIONS (13)
  - Lymphocyte count decreased [Unknown]
  - Arrhythmia [Recovering/Resolving]
  - Contusion [Recovered/Resolved]
  - Muscle strain [Unknown]
  - Thrombosis [Unknown]
  - Lung infection [Recovering/Resolving]
  - Nausea [Not Recovered/Not Resolved]
  - Platelet count abnormal [Unknown]
  - Haemorrhage [Recovering/Resolving]
  - Off label use [Unknown]
  - Blood blister [Unknown]
  - Haematoma [Unknown]
  - Infection [Unknown]

NARRATIVE: CASE EVENT DATE: 20170411
